FAERS Safety Report 8231824-0 (Version None)
Quarter: 2012Q1

REPORT INFORMATION
  Report Type: 
  Country: None (occurrence: None)
  Receive Date: 20120323
  Receipt Date: 20120312
  Transmission Date: 20120608
  Serious: Yes (Other)
  Sender: FDA-Public Use
  Company Number: US-PFIZER INC-2012074469

PATIENT
  Sex: Female

DRUGS (4)
  1. NEXIUM [Suspect]
     Dosage: UNK
     Route: 048
  2. ATENOLOL [Suspect]
     Dosage: UNK
     Route: 048
  3. DABIGATRAN [Concomitant]
     Dosage: UNK
     Route: 065
  4. SYNTHROID [Concomitant]
     Dosage: UNK
     Route: 065

REACTIONS (1)
  - CEREBROVASCULAR ACCIDENT [None]
